FAERS Safety Report 14410849 (Version 1)
Quarter: 2018Q1

REPORT INFORMATION
  Report Type: Spontaneous
  Country: US (occurrence: US)
  Receive Date: 20180119
  Receipt Date: 20180119
  Transmission Date: 20180509
  Serious: Yes (Other)
  Sender: FDA-Public Use
  Company Number: US-ASTRAZENECA-2018SE06668

PATIENT
  Age: 69 Year
  Sex: Female
  Weight: 40.8 kg

DRUGS (5)
  1. OMEPRAZOLE. [Suspect]
     Active Substance: OMEPRAZOLE
     Indication: GASTROOESOPHAGEAL REFLUX DISEASE
     Dosage: DAILY
     Route: 048
     Dates: start: 2003
  2. CLOPIDOGREL [Concomitant]
     Active Substance: CLOPIDOGREL BISULFATE
     Indication: TRANSIENT ISCHAEMIC ATTACK
     Route: 048
     Dates: start: 2014
  3. ZETIA [Concomitant]
     Active Substance: EZETIMIBE
     Indication: DRUG THERAPY
     Dosage: GENERIC, 10 MILLGIRAMS DAILY
     Route: 048
     Dates: start: 2016
  4. CRESTOR [Suspect]
     Active Substance: ROSUVASTATIN CALCIUM
     Indication: BLOOD CHOLESTEROL INCREASED
     Route: 048
     Dates: start: 2012, end: 2016
  5. CRESTOR [Suspect]
     Active Substance: ROSUVASTATIN CALCIUM
     Indication: BLOOD CHOLESTEROL INCREASED
     Dosage: ROSUVASTATIN, 10 MILLGIRAMS DAILY
     Route: 048
     Dates: start: 2016

REACTIONS (4)
  - Blood cholesterol increased [Not Recovered/Not Resolved]
  - Rash [Not Recovered/Not Resolved]
  - Transient ischaemic attack [Unknown]
  - Skin disorder [Not Recovered/Not Resolved]

NARRATIVE: CASE EVENT DATE: 2014
